FAERS Safety Report 9565605 (Version 1)
Quarter: 2013Q3

REPORT INFORMATION
  Report Type: Spontaneous
  Country: US (occurrence: US)
  Receive Date: 20130930
  Receipt Date: 20130930
  Transmission Date: 20140515
  Serious: No
  Sender: FDA-Public Use
  Company Number: US-009507513-1309USA013807

PATIENT
  Age: 18 Year
  Sex: Female

DRUGS (2)
  1. NUVARING [Suspect]
     Indication: CONTRACEPTION
     Dosage: 1 DF, Q3W; 1 RING FOR 3 WEEKS
     Route: 067
     Dates: start: 201301
  2. AMOXICILLIN [Concomitant]
     Indication: PHARYNGITIS STREPTOCOCCAL
     Dosage: 500 MG, QID
     Route: 048

REACTIONS (1)
  - Metrorrhagia [Unknown]
